FAERS Safety Report 5070222-8 (Version None)
Quarter: 2006Q3

REPORT INFORMATION
  Report Type: 
  Country: None (occurrence: None)
  Receive Date: 20060731
  Receipt Date: 20060717
  Transmission Date: 20061208
  Serious: Yes (Hospitalization)
  Sender: FDA-Public Use
  Company Number: 2006US001284

PATIENT
  Age: 61 Year
  Sex: Female
  Weight: 54 kg

DRUGS (9)
  1. ADENOSCAN [Suspect]
     Indication: SCAN MYOCARDIAL PERFUSION
     Dosage: 38.9 MG, IV NOS
     Route: 042
     Dates: start: 20060614, end: 20060614
  2. THALLIUM CHLORIDE                (THALLOUS CHLORIDE) [Concomitant]
  3. TRAPADIL                  (TRAPIDIL) [Concomitant]
  4. SIMVASTATIN [Concomitant]
  5. NIFEDIPINE [Concomitant]
  6. TEMOCAPRIL HYDROCHLORIDE                  (TEMOCAPRIL HYDROCHLORIDE) [Concomitant]
  7. VOGLIBOSE              (VOGLIBOSE) [Concomitant]
  8. TEPRENONE                  (TEPRENONE) [Concomitant]
  9. INSULIN HUMAN                   (INSULIN HUMAN) [Concomitant]

REACTIONS (10)
  - ANGINA PECTORIS [None]
  - ATRIOVENTRICULAR BLOCK FIRST DEGREE [None]
  - CORONARY ARTERY STENOSIS [None]
  - ELECTROCARDIOGRAM ABNORMAL [None]
  - ELECTROCARDIOGRAM ST SEGMENT DEPRESSION [None]
  - ELECTROCARDIOGRAM ST-T CHANGE [None]
  - ISCHAEMIA [None]
  - NAUSEA [None]
  - POST PROCEDURAL COMPLICATION [None]
  - POST PROCEDURAL VOMITING [None]
